FAERS Safety Report 20526913 (Version 1)
Quarter: 2022Q1

REPORT INFORMATION
  Report Type: Spontaneous
  Country: GB (occurrence: GB)
  Receive Date: 20220228
  Receipt Date: 20220228
  Transmission Date: 20220424
  Serious: Yes (Hospitalization, Other)
  Sender: FDA-Public Use
  Company Number: GB-MHRA-MED-202202161436143730-MJJAG

PATIENT
  Age: 86 Year
  Sex: Female

DRUGS (1)
  1. VENLAFAXINE [Suspect]
     Active Substance: VENLAFAXINE HYDROCHLORIDE
     Indication: Product used for unknown indication
     Dosage: UNK
     Dates: start: 20211220, end: 20220202

REACTIONS (5)
  - Lethargy [Unknown]
  - Urinary tract infection [Unknown]
  - Biliary dilatation [Unknown]
  - Confusional state [Unknown]
  - Liver function test abnormal [Recovering/Resolving]
